FAERS Safety Report 9415588 (Version 1)
Quarter: 2013Q3

REPORT INFORMATION
  Report Type: Spontaneous
  Country: US (occurrence: US)
  Receive Date: 20130723
  Receipt Date: 20130723
  Transmission Date: 20140515
  Serious: Yes (Other)
  Sender: FDA-Public Use
  Company Number: US-UCBSA-089993

PATIENT
  Sex: Female

DRUGS (1)
  1. CIMZIA [Suspect]
     Indication: CROHN^S DISEASE
     Dates: start: 20091118

REACTIONS (3)
  - Pain [Not Recovered/Not Resolved]
  - Large intestinal obstruction [Unknown]
  - Gastrointestinal inflammation [Unknown]
